FAERS Safety Report 5565899-4 (Version None)
Quarter: 2007Q4

REPORT INFORMATION
  Report Type: 
  Country: None (occurrence: None)
  Receive Date: 20071213
  Receipt Date: 20071203
  Transmission Date: 20080405
  Serious: Yes (Hospitalization)
  Sender: FDA-Public Use
  Company Number: 2007SP024216

PATIENT
  Age: 66 Year
  Sex: Male

DRUGS (2)
  1. DESLORATADINE [Suspect]
     Indication: CHRONIC SINUSITIS
     Dosage: 5 MG;QD;PO
     Route: 048
     Dates: start: 20070701, end: 20070720
  2. RINOSONE [Concomitant]

REACTIONS (3)
  - FIBRIN D DIMER INCREASED [None]
  - SYNCOPE [None]
  - VENTRICULAR EXTRASYSTOLES [None]
